FAERS Safety Report 8017277-6 (Version None)
Quarter: 2012Q1

REPORT INFORMATION
  Report Type: 
  Country: None (occurrence: None)
  Receive Date: 20120102
  Receipt Date: 20111222
  Transmission Date: 20120608
  Serious: Yes (Hospitalization)
  Sender: FDA-Public Use
  Company Number: CH-NOVOPROD-341924

PATIENT

DRUGS (10)
  1. GLIMERYL [Concomitant]
     Indication: TYPE 2 DIABETES MELLITUS
     Dosage: 2 MG, QD
     Route: 048
     Dates: end: 20111126
  2. NALOXONE [Concomitant]
     Indication: BACK PAIN
     Dosage: ORAL
     Route: 048
     Dates: start: 20111108, end: 20111126
  3. CITALOPRAM HYDROBROMIDE [Concomitant]
     Dosage: 20 MG, QD
     Route: 048
     Dates: end: 20111126
  4. METFORMIN HCL [Concomitant]
     Indication: TYPE 2 DIABETES MELLITUS
     Dosage: 1000 MG, QD
     Route: 048
     Dates: end: 20111126
  5. SINTROM [Concomitant]
     Indication: EMBOLISM
     Dosage: AS NECESSARY / ORAL
     Route: 048
     Dates: start: 20030101, end: 20111126
  6. TRIMIPRAMINE MALEATE [Concomitant]
     Dosage: 20 MG, UNK
     Route: 048
     Dates: end: 20111126
  7. NOVALGIN                           /00169801/ [Concomitant]
     Indication: BACK PAIN
     Dosage: 1 G, QID
     Route: 048
     Dates: start: 20111107, end: 20111126
  8. SINTROM [Concomitant]
     Indication: VENOUS THROMBOSIS
  9. ALLOPURINOL [Concomitant]
     Dosage: 150 MG, QD
     Route: 048
     Dates: end: 20111126
  10. VICTOZA [Suspect]
     Indication: TYPE 2 DIABETES MELLITUS
     Dosage: 0.6 MG, QD
     Route: 058
     Dates: start: 20111116, end: 20111126

REACTIONS (1)
  - CHOLESTATIC LIVER INJURY [None]
